FAERS Safety Report 11170783 (Version 1)
Quarter: 2015Q2

REPORT INFORMATION
  Report Type: Spontaneous
  Country: US (occurrence: None)
  Receive Date: 20150605
  Receipt Date: 20150605
  Transmission Date: 20150821
  Serious: No
  Sender: FDA-Public Use
  Company Number: None

PATIENT
  Age: 64 Year
  Sex: Female

DRUGS (6)
  1. AMPYRA [Suspect]
     Active Substance: DALFAMPRIDINE
     Indication: MULTIPLE SCLEROSIS
     Route: 048
     Dates: start: 201107
  2. ALBUMIN [Concomitant]
     Active Substance: ALBUMIN (HUMAN)
  3. INTERFERON BETA-1A [Concomitant]
     Active Substance: INTERFERON BETA-1A
  4. REBIF, WITH ALBUMIN [Concomitant]
  5. AMANTADINE (SYMMETREL) [Concomitant]
  6. GABAPENTIN (NEURONTIN) [Concomitant]

REACTIONS (4)
  - Dysuria [None]
  - Pollakiuria [None]
  - Escherichia urinary tract infection [None]
  - Micturition urgency [None]

NARRATIVE: CASE EVENT DATE: 20150512
